FAERS Safety Report 24692061 (Version 3)
Quarter: 2025Q3

REPORT INFORMATION
  Report Type: Spontaneous
  Country: US (occurrence: US)
  Receive Date: 20241203
  Receipt Date: 20250704
  Transmission Date: 20251021
  Serious: No
  Sender: SANOFI AVENTIS
  Company Number: US-SA-2024SA354996

PATIENT
  Age: 2 Year
  Sex: Male

DRUGS (1)
  1. DUPIXENT [Suspect]
     Active Substance: DUPILUMAB
     Indication: Dermatitis allergic
     Dosage: 200 MG, Q4W
     Route: 058
     Dates: start: 202407, end: 2025

REACTIONS (4)
  - Rebound eczema [Unknown]
  - Product dose omission issue [Unknown]
  - Fear of injection [Unknown]
  - Erythema [Unknown]

NARRATIVE: CASE EVENT DATE: 20240101
